FAERS Safety Report 10543243 (Version 2)
Quarter: 2014Q4

REPORT INFORMATION
  Report Type: Spontaneous
  Country: US (occurrence: None)
  Receive Date: 20141010
  Receipt Date: 20141205
  Transmission Date: 20150529
  Serious: Yes (Other)
  Sender: FDA-Public Use
  Company Number: 163-POMAL-14080614

PATIENT
  Age: 83 Year
  Sex: Female
  Weight: 58.65 kg

DRUGS (20)
  1. ASPIRIN(ACETYLSALICYLIC ACID) [Concomitant]
     Active Substance: ASPIRIN
  2. ACYCLOVIR(ACICLOVIR) [Concomitant]
  3. CARVEDILOL (CARVEDILOL) [Concomitant]
     Active Substance: CARVEDILOL
  4. VESICARE [Concomitant]
     Active Substance: SOLIFENACIN SUCCINATE
  5. ATORVASTATIN CALCIUM. [Concomitant]
     Active Substance: ATORVASTATIN CALCIUM
  6. GABAPENTIN. [Concomitant]
     Active Substance: GABAPENTIN
  7. LORAZEPAM (LORAZEPAM) [Concomitant]
     Active Substance: LORAZEPAM
  8. SENNA-S (SENNA ALEXANDRINA) [Concomitant]
  9. TYLENOL [Concomitant]
     Active Substance: ACETAMINOPHEN
  10. WARFARIN SODIUM. [Concomitant]
     Active Substance: WARFARIN SODIUM
  11. DEXAMETHASONE. [Concomitant]
     Active Substance: DEXAMETHASONE
  12. POMALYST [Suspect]
     Active Substance: POMALIDOMIDE
     Indication: PLASMA CELL MYELOMA
     Dosage: 4 MG, 21 IN 21 D, PO
     Route: 048
     Dates: start: 20140721
  13. CALCIUM PLUS VITAMIN D (CALCIUM D3) [Concomitant]
  14. PANTORPAZOLE SODIUM [Concomitant]
  15. VENLAFAXINE HC(VENLAFAXINE HYDROCHLORIDE) [Concomitant]
  16. AMOXICLLIN (AMOXICILLIN) [Concomitant]
  17. CARBIDOPA/LEVODOPA (SINEMET) [Concomitant]
  18. DURAGESIC (FENTANYL) [Concomitant]
  19. PROBIOTICS (PROBIOTICS) [Concomitant]
  20. AMLODIPNE (AMLODIPINE) [Concomitant]

REACTIONS (3)
  - Cystitis [None]
  - Haemoglobin decreased [None]
  - Contusion [None]

NARRATIVE: CASE EVENT DATE: 2014
